FAERS Safety Report 7128583-1 (Version None)
Quarter: 2010Q4

REPORT INFORMATION
  Report Type: 
  Country: None (occurrence: None)
  Receive Date: 20101130
  Receipt Date: 20101122
  Transmission Date: 20110411
  Serious: Yes (Hospitalization)
  Sender: FDA-Public Use
  Company Number: US-JNJFOC-20101107685

PATIENT
  Sex: Female
  Weight: 63.96 kg

DRUGS (10)
  1. LEVAQUIN [Suspect]
     Indication: OVARIAN ABSCESS
     Route: 042
  2. LEVAQUIN [Suspect]
     Indication: ABDOMINAL ABSCESS
  3. LEVAQUIN [Suspect]
  4. LEVAQUIN [Suspect]
     Indication: POSTOPERATIVE ABSCESS
  5. FLUCONAZOLE [Concomitant]
     Indication: ABDOMINAL ABSCESS
     Route: 048
  6. METRONIDAZOLE [Concomitant]
     Indication: ABDOMINAL ABSCESS
     Route: 048
  7. ATENOLOL [Concomitant]
     Indication: BLOOD PRESSURE
     Route: 048
  8. ASPIRIN [Concomitant]
     Indication: ROUTINE HEALTH MAINTENANCE
     Route: 048
  9. HYZAAR [Concomitant]
     Indication: BLOOD PRESSURE
     Dosage: 50/12 MG DAILY
     Route: 048
  10. COLACE [Concomitant]
     Indication: FAECES HARD
     Route: 048

REACTIONS (3)
  - ABNORMAL LOSS OF WEIGHT [None]
  - HYPOAESTHESIA [None]
  - PAIN IN EXTREMITY [None]
